FAERS Safety Report 5299289-9 (Version None)
Quarter: 2007Q2

REPORT INFORMATION
  Report Type: 
  Country: None (occurrence: None)
  Receive Date: 20070417
  Receipt Date: 20070412
  Transmission Date: 20071010
  Serious: Yes (Hospitalization)
  Sender: FDA-Public Use
  Company Number: US-MERCK-0704USA02382

PATIENT
  Age: 53 Year
  Sex: Male

DRUGS (11)
  1. DECADRON [Suspect]
     Route: 048
     Dates: start: 20061201
  2. THALOMID [Suspect]
     Indication: MULTIPLE MYELOMA
     Route: 048
     Dates: start: 20061229, end: 20070228
  3. THALOMID [Suspect]
     Route: 048
     Dates: start: 20061201
  4. DILAUDID [Concomitant]
     Route: 065
  5. PROTONIX [Concomitant]
     Route: 065
  6. ZOMETA [Concomitant]
     Route: 065
  7. PRILOSEC [Concomitant]
     Route: 065
  8. SENOKOT [Concomitant]
     Route: 065
  9. NEURONTIN [Concomitant]
     Route: 065
  10. BACLOFEN [Concomitant]
     Route: 065
  11. ARANESP [Concomitant]
     Route: 065

REACTIONS (5)
  - ATRIAL TACHYCARDIA [None]
  - DEEP VEIN THROMBOSIS [None]
  - PNEUMONIA [None]
  - PNEUMONITIS [None]
  - PULMONARY EMBOLISM [None]
